FAERS Safety Report 5054943-9 (Version None)
Quarter: 2006Q3

REPORT INFORMATION
  Report Type: 
  Country: None (occurrence: None)
  Receive Date: 20060719
  Receipt Date: 20060705
  Transmission Date: 20061208
  Serious: Yes (Life-Threatening, Hospitalization, Other)
  Sender: FDA-Public Use
  Company Number: US-AVENTIS-200616972GDDC

PATIENT
  Age: 65 Year
  Sex: Male
  Weight: 62.4 kg

DRUGS (8)
  1. TAXOTERE [Suspect]
     Indication: NON-SMALL CELL LUNG CANCER
     Route: 042
     Dates: start: 20060621, end: 20060621
  2. CARBOPLATIN [Suspect]
     Indication: NON-SMALL CELL LUNG CANCER
     Dosage: DOSE: AUC 6
     Dates: start: 20060621, end: 20060621
  3. KYTRIL [Concomitant]
     Dosage: DOSE: UNK
  4. COMPAZINE [Concomitant]
     Dosage: DOSE: UNK
  5. ZIAC [Concomitant]
     Dosage: DOSE: UNK
  6. SPIRIVA [Concomitant]
     Dosage: DOSE: UNK
  7. FLOVENT [Concomitant]
     Dosage: DOSE: UNK
  8. ALBUTEROL SPIROS [Concomitant]
     Dosage: DOSE: UNK

REACTIONS (9)
  - CARDIAC ARREST [None]
  - GASTRIC ULCER PERFORATION [None]
  - GASTROINTESTINAL HAEMORRHAGE [None]
  - HYPOTENSION [None]
  - MUCOSAL INFLAMMATION [None]
  - NAUSEA [None]
  - NEUTROPENIC SEPSIS [None]
  - SEPSIS [None]
  - SYNCOPE [None]
